FAERS Safety Report 5463145-3 (Version None)
Quarter: 2007Q3

REPORT INFORMATION
  Report Type: 
  Country: None (occurrence: None)
  Receive Date: 20070920
  Receipt Date: 20070909
  Transmission Date: 20080115
  Serious: Yes (Other)
  Sender: FDA-Public Use
  Company Number: CN-ROCHE-513746

PATIENT
  Age: 52 Year
  Sex: Female
  Weight: 63 kg

DRUGS (3)
  1. XELODA [Suspect]
     Indication: BREAST CANCER
     Route: 048
     Dates: start: 20070810
  2. DOCETAXEL [Concomitant]
     Indication: BREAST CANCER
     Dosage: ROUTE REPORTED AS I.V. GTT.
     Route: 042
     Dates: start: 20070810
  3. HERCEPTIN [Concomitant]
     Indication: BREAST CANCER
     Dosage: ROUTE: I.V.GTT.
     Route: 042
     Dates: start: 20070821

REACTIONS (2)
  - HEPATIC ENZYME INCREASED [None]
  - PALMAR-PLANTAR ERYTHRODYSAESTHESIA SYNDROME [None]
